FAERS Safety Report 9395669 (Version 3)
Quarter: 2014Q1

REPORT INFORMATION
  Report Type: Report from Study
  Country: ES (occurrence: ES)
  Receive Date: 20130711
  Receipt Date: 20140130
  Transmission Date: 20141002
  Serious: Yes (Death, Hospitalization)
  Sender: FDA-Public Use
  Company Number: ES-CELGENEUS-144-21660-13060100

PATIENT
  Sex: Female
  Weight: 67 kg

DRUGS (5)
  1. ABRAXANE [Suspect]
     Indication: PANCREATIC CARCINOMA
     Route: 041
     Dates: start: 20130417, end: 20130529
  2. GEMCITABINE [Suspect]
     Indication: PANCREATIC CARCINOMA
     Route: 041
     Dates: start: 20130417, end: 20130529
  3. FORTECORTIN [Concomitant]
     Indication: HEPATIC FUNCTION ABNORMAL
     Route: 065
     Dates: start: 20130325, end: 20130617
  4. PANTOPRAZOLE [Concomitant]
     Indication: PROPHYLAXIS
     Route: 065
     Dates: start: 20130325, end: 20130617
  5. URSOBILANE [Concomitant]
     Indication: BILE DUCT OBSTRUCTION
     Route: 065
     Dates: start: 201303, end: 20130617

REACTIONS (2)
  - Abdominal sepsis [Fatal]
  - Diarrhoea infectious [Fatal]
